FAERS Safety Report 7611410-3 (Version None)
Quarter: 2011Q3

REPORT INFORMATION
  Report Type: 
  Country: None (occurrence: None)
  Receive Date: 20110715
  Receipt Date: 20110706
  Transmission Date: 20111222
  Serious: Yes (Hospitalization)
  Sender: FDA-Public Use
  Company Number: FR-CELGENEUS-056-21880-11070425

PATIENT
  Sex: Male

DRUGS (7)
  1. DEXAMETHASONE [Concomitant]
     Route: 065
     Dates: start: 20110201
  2. PANTOPRAZOLE [Concomitant]
     Route: 065
  3. ASPIRIN [Concomitant]
     Route: 048
  4. REVLIMID [Suspect]
     Route: 048
     Dates: start: 20110201, end: 20110418
  5. PERINDOPRIL ERBUMINE [Concomitant]
     Route: 048
  6. NEBIVOLOL HCL [Concomitant]
     Route: 065
  7. LEVOTHYROXINE SODIUM [Concomitant]
     Route: 048

REACTIONS (3)
  - RASH PUSTULAR [None]
  - VASCULAR PURPURA [None]
  - LEUKOCYTOCLASTIC VASCULITIS [None]
